FAERS Safety Report 6167265-X (Version None)
Quarter: 2009Q2

REPORT INFORMATION
  Report Type: 
  Country: None (occurrence: None)
  Receive Date: 20090424
  Receipt Date: 20090416
  Transmission Date: 20091009
  Serious: Yes (Other)
  Sender: FDA-Public Use
  Company Number: US-ELI_LILLY_AND_COMPANY-US200904003771

PATIENT
  Sex: Female

DRUGS (5)
  1. HUMALOG [Suspect]
     Indication: DIABETES MELLITUS
     Dosage: UNK, UNK
     Dates: start: 20040101
  2. HUMALOG [Suspect]
  3. HUMALOG [Suspect]
     Dates: end: 20040101
  4. COREG [Concomitant]
     Indication: ATRIAL FIBRILLATION
  5. INSULIN [Concomitant]
     Dates: start: 19570101

REACTIONS (10)
  - AORTIC ANEURYSM [None]
  - ATRIAL FIBRILLATION [None]
  - BLOOD GLUCOSE DECREASED [None]
  - BLOOD GLUCOSE INCREASED [None]
  - BLOOD PRESSURE ABNORMAL [None]
  - CHOLECYSTECTOMY [None]
  - CORONARY ARTERY BYPASS [None]
  - FEAR [None]
  - STENT PLACEMENT [None]
  - VASCULAR GRAFT [None]
